FAERS Safety Report 9293198 (Version 4)
Quarter: 2014Q4

REPORT INFORMATION
  Report Type: Spontaneous
  Country: US (occurrence: US)
  Receive Date: 20130516
  Receipt Date: 20141027
  Transmission Date: 20150529
  Serious: No
  Sender: FDA-Public Use
  Company Number: US-009507513-1305USA009302

PATIENT
  Sex: Male
  Weight: 77.32 kg

DRUGS (4)
  1. PROPECIA [Suspect]
     Active Substance: FINASTERIDE
     Dosage: 1 MG, QD
     Route: 048
     Dates: start: 20010730, end: 20121203
  2. PROPECIA [Suspect]
     Active Substance: FINASTERIDE
     Dosage: 1 MG, QD
     Route: 048
     Dates: start: 20000911, end: 20010611
  3. FINASTERIDE. [Suspect]
     Active Substance: FINASTERIDE
     Dosage: 1 MG, QD
     Route: 048
     Dates: start: 20130320
  4. PROPECIA [Suspect]
     Active Substance: FINASTERIDE
     Indication: ANDROGENETIC ALOPECIA
     Dosage: 1 MG, DAILY
     Route: 048
     Dates: start: 199803

REACTIONS (17)
  - Inappropriate schedule of drug administration [Unknown]
  - Benign neoplasm of skin [Unknown]
  - Dry skin [Unknown]
  - Tinea infection [Unknown]
  - Sexual dysfunction [Not Recovered/Not Resolved]
  - Acne [Unknown]
  - Weight increased [Unknown]
  - Erectile dysfunction [Recovered/Resolved]
  - Ejaculation failure [Unknown]
  - Rash [Unknown]
  - Dermatitis [Unknown]
  - Insomnia [Unknown]
  - Libido decreased [Unknown]
  - Molluscum contagiosum [Unknown]
  - Melanocytic naevus [Unknown]
  - Keratomileusis [Unknown]
  - Skin papilloma [Unknown]

NARRATIVE: CASE EVENT DATE: 2003
